FAERS Safety Report 7996528-8 (Version None)
Quarter: 2011Q4

REPORT INFORMATION
  Report Type: 
  Country: None (occurrence: None)
  Receive Date: 20111221
  Receipt Date: 20111214
  Transmission Date: 20120403
  Serious: Yes (Other)
  Sender: FDA-Public Use
  Company Number: US-AMGEN-USASP2011053012

PATIENT
  Age: 46 Year
  Sex: Male

DRUGS (1)
  1. ENBREL [Suspect]
     Indication: PSORIASIS
     Dosage: 50 MG, 2 TIMES/WK
     Dates: start: 20110901, end: 20110101

REACTIONS (6)
  - MUSCLE SPASMS [None]
  - HYPOAESTHESIA [None]
  - RETCHING [None]
  - ABDOMINAL PAIN [None]
  - HYPERSOMNIA [None]
  - INSOMNIA [None]
